FAERS Safety Report 5068725-5 (Version None)
Quarter: 2006Q3

REPORT INFORMATION
  Report Type: 
  Country: None (occurrence: None)
  Receive Date: 20060802
  Receipt Date: 20060301
  Transmission Date: 20061208
  Serious: No
  Sender: FDA-Public Use
  Company Number: US-BRISTOL-MYERS SQUIBB COMPANY-13300116

PATIENT
  Age: 63 Year
  Sex: Female
  Weight: 68 kg

DRUGS (5)
  1. COUMADIN [Suspect]
     Indication: THROMBOSIS
     Dosage: 5 MG ONE TABLET DAILY ALTERNATING EVERY OTHER DAY WITH 1/2 OF A 5 MG TABLET STARTING 10 DAY AGO
     Dates: start: 20060201
  2. LANOXIN [Concomitant]
  3. PREMARIN [Concomitant]
  4. LIPITOR [Concomitant]
  5. K-DUR 10 [Concomitant]

REACTIONS (1)
  - MADAROSIS [None]
